FAERS Safety Report 8117973-6 (Version None)
Quarter: 2011Q4

REPORT INFORMATION
  Report Type: 
  Country: None (occurrence: None)
  Receive Date: 20111227
  Receipt Date: 20111108
  Transmission Date: 20120403
  Serious: No
  Sender: FDA-Public Use
  Company Number: PHEH2011US06561

PATIENT
  Age: 37 Year
  Sex: Female
  Weight: 63.5 kg

DRUGS (4)
  1. GILENYA [Suspect]
     Indication: MULTIPLE SCLEROSIS
     Dosage: 0.5 MG, QD, ORAL
     Route: 048
     Dates: start: 20110803
  2. IBUPROFEN [Concomitant]
  3. BACLOFEN [Concomitant]
  4. OXYCODONE W/PARACETAMOL (OXYCODONE, PARACETAMOL) [Concomitant]

REACTIONS (3)
  - EYE PAIN [None]
  - PAIN [None]
  - NECK PAIN [None]
